FAERS Safety Report 7624779-0 (Version None)
Quarter: 2011Q3

REPORT INFORMATION
  Report Type: 
  Country: None (occurrence: None)
  Receive Date: 20110720
  Receipt Date: 20081014
  Transmission Date: 20111222
  Serious: Yes (Hospitalization, Other)
  Sender: FDA-Public Use
  Company Number: DE-GENENTECH-321688

PATIENT
  Age: 80 Year
  Sex: Female

DRUGS (2)
  1. AVASTIN [Suspect]
     Indication: PRODUCT USED FOR UNKNOWN INDICATION
  2. LUCENTIS [Suspect]
     Indication: AGE-RELATED MACULAR DEGENERATION
     Route: 031

REACTIONS (10)
  - DIZZINESS [None]
  - MALAISE [None]
  - BLOOD PRESSURE FLUCTUATION [None]
  - RETINAL DISORDER [None]
  - CHOROIDAL NEOVASCULARISATION [None]
  - METAMORPHOPSIA [None]
  - VISUAL ACUITY REDUCED [None]
  - RETINAL DETACHMENT [None]
  - CONTUSION [None]
  - CATARACT [None]
